FAERS Safety Report 15552770 (Version 3)
Quarter: 2018Q4

REPORT INFORMATION
  Report Type: Report from Study
  Country: US (occurrence: US)
  Receive Date: 20181025
  Receipt Date: 20181204
  Transmission Date: 20190205
  Serious: Yes (Hospitalization, Other)
  Sender: FDA-Public Use
  Company Number: US-BRISTOL-MYERS SQUIBB COMPANY-BMS-2018-098834

PATIENT
  Age: 75 Year
  Sex: Male
  Weight: 96.2 kg

DRUGS (2)
  1. HF10 [Suspect]
     Active Substance: CANERPATUREV
     Indication: METASTATIC MALIGNANT MELANOMA
     Dosage: 4 ML, Q2WK
     Route: 050
     Dates: start: 20180418, end: 20180711
  2. NIVOLUMAB [Suspect]
     Active Substance: NIVOLUMAB
     Indication: METASTATIC MALIGNANT MELANOMA
     Dosage: 480 MG, UNK
     Route: 042
     Dates: start: 20180418, end: 20180919

REACTIONS (6)
  - Muscular weakness [Unknown]
  - Failure to thrive [Unknown]
  - Fatigue [Unknown]
  - Hyponatraemia [Unknown]
  - Adrenal insufficiency [Unknown]
  - Hypophysitis [Unknown]

NARRATIVE: CASE EVENT DATE: 20181001
